FAERS Safety Report 7878715-2 (Version None)
Quarter: 2011Q4

REPORT INFORMATION
  Report Type: 
  Country: None (occurrence: None)
  Receive Date: 20111028
  Receipt Date: 20111012
  Transmission Date: 20120403
  Serious: Yes (Death)
  Sender: FDA-Public Use
  Company Number: 1000024840

PATIENT
  Age: 71 Year
  Sex: Male
  Weight: 60 kg

DRUGS (12)
  1. FUROBETA (FUROSEMIDE) (FUROSEMIDE) [Concomitant]
  2. SYMBICORT (BUDESONIDE, FORMOTEROL FUMARATE) (BUDESONIDE, FORMOTEROL FU [Concomitant]
  3. PREDNISOLON (PREDNISOLONE) (PREDNISOLONE) [Concomitant]
  4. SPIRO (SPIRONOLACTONE) (SPIRONOLACTONE) [Concomitant]
  5. BERODUAL (FENOTEROL, IPRATROPIUM BROMIDE) (FENOTEROL, IPRATROPIUM BROM [Concomitant]
  6. NEBILET (NEBIVOLOL HYDROCHLORIDE) (NEBIVOLOL HYDROCHLORIDE) [Concomitant]
  7. SPIRIVA (TIOTROPIUM BROMIDE) (TIOTROPION BROMIDE) [Concomitant]
  8. ROFLUMILAST (ROFLUMILAST) (TABLETS) [Suspect]
     Indication: CHRONIC OBSTRUCTIVE PULMONARY DISEASE
     Dosage: 500 MCG (500 MCG, 1 IN 1 D), ORAL
     Route: 048
     Dates: start: 20110310, end: 20110331
  9. UNIPHYLLINE (THEOPHYLLINE MONOHYDRATE) (THEOPHYLLINE MONOHYDRATE) [Concomitant]
  10. OXYGEN (OXYGEN) (OXYGEN) [Concomitant]
  11. MARCUMAR (PHENPROCOUMON) (PHENPROCOUMON) [Concomitant]
  12. ALENDRON (ALENDRONATE SODIUM) (ALENDRONATE SODIUM) [Concomitant]

REACTIONS (5)
  - RESPIRATORY DISTRESS [None]
  - RENAL FAILURE [None]
  - LOBAR PNEUMONIA [None]
  - PNEUMONIA KLEBSIELLA [None]
  - PNEUMONIA ESCHERICHIA [None]
